FAERS Safety Report 20383457 (Version 1)
Quarter: 2022Q1

REPORT INFORMATION
  Report Type: Report from Study
  Country: KR (occurrence: KR)
  Receive Date: 20220127
  Receipt Date: 20220127
  Transmission Date: 20220424
  Serious: Yes (Other)
  Sender: FDA-Public Use
  Company Number: KR-TEVA-2022-KR-2000997

PATIENT
  Age: 33 Year
  Sex: Male

DRUGS (10)
  1. ETOPOSIDE [Suspect]
     Active Substance: ETOPOSIDE
     Indication: Metastases to the mediastinum
     Route: 065
  2. ETOPOSIDE [Suspect]
     Active Substance: ETOPOSIDE
     Indication: Metastatic choriocarcinoma
  3. CISPLATIN [Suspect]
     Active Substance: CISPLATIN
     Indication: Metastases to the mediastinum
     Route: 065
  4. CISPLATIN [Suspect]
     Active Substance: CISPLATIN
     Indication: Metastatic choriocarcinoma
  5. BLEOMYCIN [Suspect]
     Active Substance: BLEOMYCIN SULFATE
     Indication: Metastases to the mediastinum
     Route: 065
  6. BLEOMYCIN [Suspect]
     Active Substance: BLEOMYCIN SULFATE
     Indication: Metastatic choriocarcinoma
  7. PACLITAXEL [Suspect]
     Active Substance: PACLITAXEL
     Indication: Metastases to the mediastinum
     Route: 065
  8. PACLITAXEL [Suspect]
     Active Substance: PACLITAXEL
     Indication: Metastatic choriocarcinoma
  9. IFOSFAMIDE [Suspect]
     Active Substance: IFOSFAMIDE
     Indication: Metastases to the mediastinum
     Route: 065
  10. IFOSFAMIDE [Suspect]
     Active Substance: IFOSFAMIDE
     Indication: Metastatic choriocarcinoma

REACTIONS (1)
  - Multiple-drug resistance [Unknown]
